FAERS Safety Report 9698534 (Version 3)
Quarter: 2014Q1

REPORT INFORMATION
  Report Type: Spontaneous
  Country: US (occurrence: US)
  Receive Date: 20131120
  Receipt Date: 20140204
  Transmission Date: 20141002
  Serious: Yes (Life-Threatening, Other)
  Sender: FDA-Public Use
  Company Number: US-ACTELION-A-US2013-86620

PATIENT
  Age: 60 Year
  Sex: Female

DRUGS (10)
  1. TRACLEER [Suspect]
     Indication: RAYNAUD^S PHENOMENON
     Dosage: 125 MG, BID
     Route: 048
     Dates: start: 201005, end: 20130726
  2. TRACLEER [Suspect]
     Dosage: 62.5 MG, BID
     Route: 048
     Dates: start: 201004, end: 201005
  3. AMLODIPINE [Concomitant]
     Dosage: 10 MG, UNK
  4. ASA [Concomitant]
     Dosage: 81 MG, UNK
  5. VITAMIN C [Concomitant]
     Dosage: 500 MG, UNK
  6. VITAMIN D [Concomitant]
     Dosage: 2000 USP UNIT, UNK
  7. FERROUS SULFATE [Concomitant]
     Dosage: 325 MG, UNK
  8. PROTONIX [Concomitant]
     Dosage: 40 MG, UNK
  9. PENTOXIFYLLIN [Concomitant]
     Dosage: 400 MG, TID
  10. REVATIO [Concomitant]
     Dosage: 20 MG, TID

REACTIONS (8)
  - Liver function test abnormal [Not Recovered/Not Resolved]
  - Aspartate aminotransferase increased [Not Recovered/Not Resolved]
  - Alanine aminotransferase increased [Not Recovered/Not Resolved]
  - Biopsy liver [Not Recovered/Not Resolved]
  - Hepatic steatosis [Not Recovered/Not Resolved]
  - Hepatic fibrosis [Not Recovered/Not Resolved]
  - Lymphocytic infiltration [Not Recovered/Not Resolved]
  - Platelet count decreased [Not Recovered/Not Resolved]
